FAERS Safety Report 18730363 (Version 1)
Quarter: 2021Q1

REPORT INFORMATION
  Report Type: Spontaneous
  Country: US (occurrence: US)
  Receive Date: 20210112
  Receipt Date: 20210112
  Transmission Date: 20210419
  Serious: No
  Sender: FDA-Public Use
  Company Number: US-INTRA-CELLULAR THERAPIES, INC.-2020ICT00222

PATIENT
  Age: 56 Year
  Sex: Male
  Weight: 145.13 kg

DRUGS (2)
  1. DEPAKOTE [Concomitant]
     Active Substance: DIVALPROEX SODIUM
  2. CAPLYTA [Suspect]
     Active Substance: LUMATEPERONE
     Indication: SCHIZOPHRENIA
     Dosage: 42 MG, 1X/DAY
     Route: 048
     Dates: start: 202010, end: 202011

REACTIONS (6)
  - Decreased appetite [Not Recovered/Not Resolved]
  - Headache [Recovering/Resolving]
  - Nausea [Not Recovered/Not Resolved]
  - Dry mouth [Recovering/Resolving]
  - Anxiety [Unknown]
  - Dizziness [Recovering/Resolving]

NARRATIVE: CASE EVENT DATE: 202010
